FAERS Safety Report 8261820-9 (Version None)
Quarter: 2012Q2

REPORT INFORMATION
  Report Type: 
  Country: None (occurrence: None)
  Receive Date: 20120405
  Receipt Date: 20120329
  Transmission Date: 20120825
  Serious: Yes (Hospitalization, Other)
  Sender: FDA-Public Use
  Company Number: DE-BRISTOL-MYERS SQUIBB COMPANY-16243503

PATIENT
  Age: 77 Year
  Sex: Male
  Weight: 75 kg

DRUGS (6)
  1. PREDNISOLONE [Suspect]
     Indication: RHEUMATOID ARTHRITIS
     Route: 048
     Dates: start: 20010418
  2. ARCOXIA [Concomitant]
     Dosage: 1DF:90 UNIT NOS
  3. PANTOPRAZOLE [Concomitant]
     Dosage: 1DF:40 UNIT NOS
  4. ORENCIA [Suspect]
     Indication: RHEUMATOID ARTHRITIS
     Dosage: INTER ON 11OCT11
     Route: 042
     Dates: start: 20080429, end: 20111011
  5. CELEBREX [Suspect]
     Indication: RHEUMATOID ARTHRITIS
     Route: 048
     Dates: start: 20010418, end: 20111011
  6. DIPIPERON [Concomitant]

REACTIONS (2)
  - GASTROINTESTINAL ANASTOMOTIC LEAK [None]
  - RECTAL CANCER [None]
